FAERS Safety Report 22061296 (Version 1)
Quarter: 2023Q1

REPORT INFORMATION
  Report Type: Spontaneous
  Country: US (occurrence: US)
  Receive Date: 20230304
  Receipt Date: 20230304
  Transmission Date: 20230418
  Serious: No
  Sender: FDA-Public Use
  Company Number: US-002147023-NVSC2023US049027

PATIENT
  Sex: Male

DRUGS (1)
  1. BRIMONIDINE TARTRATE [Suspect]
     Active Substance: BRIMONIDINE TARTRATE
     Indication: Glaucoma
     Dosage: UNK, BID
     Route: 065
     Dates: start: 20230222

REACTIONS (3)
  - Ocular discomfort [Unknown]
  - Eye irritation [Unknown]
  - Drug ineffective [Unknown]
